FAERS Safety Report 16043365 (Version 1)
Quarter: 2019Q1

REPORT INFORMATION
  Report Type: Spontaneous
  Country: AU (occurrence: AU)
  Receive Date: 20190306
  Receipt Date: 20190306
  Transmission Date: 20190418
  Serious: Yes (Other)
  Sender: FDA-Public Use
  Company Number: AU-JNJFOC-20190235324

PATIENT
  Sex: Female

DRUGS (5)
  1. SECUKINUMAB. [Suspect]
     Active Substance: SECUKINUMAB
     Indication: PRODUCT USED FOR UNKNOWN INDICATION
     Route: 065
  2. INFLIXIMAB [Suspect]
     Active Substance: INFLIXIMAB
     Indication: PRODUCT USED FOR UNKNOWN INDICATION
     Route: 042
  3. METHOTREXATE. [Suspect]
     Active Substance: METHOTREXATE
     Indication: PRODUCT USED FOR UNKNOWN INDICATION
     Route: 065
  4. ADALIMUMAB [Suspect]
     Active Substance: ADALIMUMAB
     Indication: PRODUCT USED FOR UNKNOWN INDICATION
     Route: 065
  5. ANAKINRA [Suspect]
     Active Substance: ANAKINRA
     Indication: PRODUCT USED FOR UNKNOWN INDICATION
     Route: 065

REACTIONS (14)
  - Haematological malignancy [Unknown]
  - Confusional state [Unknown]
  - Arthralgia [Unknown]
  - Vertigo [Unknown]
  - Leukocytosis [Unknown]
  - Abdominal pain [Unknown]
  - Peripheral swelling [Unknown]
  - Anal incontinence [Unknown]
  - Gastrointestinal haemorrhage [Unknown]
  - Migraine [Unknown]
  - Gastrointestinal pain [Unknown]
  - Swelling [Unknown]
  - Anal stenosis [Unknown]
  - Thrombocytosis [Unknown]
